FAERS Safety Report 17270775 (Version 2)
Quarter: 2020Q1

REPORT INFORMATION
  Report Type: Spontaneous
  Country: DE (occurrence: DE)
  Receive Date: 20200115
  Receipt Date: 20200131
  Transmission Date: 20200409
  Serious: Yes (Other)
  Sender: FDA-Public Use
  Company Number: DE-ABBVIE-20K-062-3232089-00

PATIENT
  Age: 51 Year
  Sex: Male
  Weight: 73 kg

DRUGS (3)
  1. HUMIRA [Suspect]
     Active Substance: ADALIMUMAB
     Indication: SPONDYLITIS
  2. HUMIRA [Suspect]
     Active Substance: ADALIMUMAB
     Indication: CROHN^S DISEASE
     Route: 058
     Dates: start: 201308
  3. PREDNISOLON [Concomitant]
     Active Substance: PREDNISOLONE
     Indication: INFLAMMATORY BOWEL DISEASE
     Dosage: INITIAL DOSE APPROX. 20 MG/ DAY, GRADUALLY, AS STEROID PUSH

REACTIONS (13)
  - Muscle hypertrophy [Unknown]
  - Muscle atrophy [Unknown]
  - Myalgia [Unknown]
  - Soft tissue disorder [Unknown]
  - Antinuclear antibody increased [Not Recovered/Not Resolved]
  - Muscle necrosis [Unknown]
  - Blood creatine phosphokinase increased [Not Recovered/Not Resolved]
  - Muscle disorder [Unknown]
  - Muscle disorder [Unknown]
  - Phagocytosis [Unknown]
  - Myopathy [Not Recovered/Not Resolved]
  - Muscular weakness [Unknown]
  - Arthralgia [Unknown]

NARRATIVE: CASE EVENT DATE: 20140814
